FAERS Safety Report 9528491 (Version 1)
Quarter: 2013Q1

REPORT INFORMATION
  Report Type: Spontaneous
  Country: US (occurrence: None)
  Receive Date: 20130314
  Receipt Date: 20130314
  Transmission Date: 20140127
  Serious: Yes (Other)
  Sender: FDA-Public Use
  Company Number: 1212USA009628

PATIENT
  Age: 55 Year
  Sex: Female
  Weight: 98 kg

DRUGS (11)
  1. VICTRELIS [Suspect]
     Dosage: 800 MG (4-200 MG CAPS BY MOUTH THREE TIMES A DAY (EVERY 7-9 HOURS), TO START ON WEEK 5), TID, ORAL
     Route: 048
  2. RIBAVIRIN (RIBAVIRIN) CAPSULE, 200MG [Suspect]
  3. PEGASYS (PEGINTERFERON ALFA-2A) INJECTION [Suspect]
     Dosage: 180 MICROGRAMS/M
  4. PROCRIT (EPOETIN ALFA) [Suspect]
  5. JANUVIA (SITAGLIPTIN PHOSPHATE) [Concomitant]
  6. NORVASC (AMLODIPINE BESYLATE) [Concomitant]
  7. METFORMIN (METFORMIN) [Concomitant]
  8. LISINOPRIL (LISINOPRIL) [Concomitant]
  9. GLYBURIDE (GLYBURIDE) [Concomitant]
  10. WELLBUTRIN (BUPROPION HYDROCHLORIDE) [Concomitant]
  11. IRON (UNSPECIFIED) (IRON (UNSPECIFIED)) [Concomitant]

REACTIONS (3)
  - Blood iron decreased [None]
  - Balance disorder [None]
  - Asthenia [None]
